FAERS Safety Report 4484768-4 (Version None)
Quarter: 2004Q4

REPORT INFORMATION
  Report Type: 
  Country: None (occurrence: None)
  Receive Date: 20041022
  Receipt Date: 20041006
  Transmission Date: 20050328
  Serious: Yes (Death)
  Sender: FDA-Public Use
  Company Number: 2004AL000853

PATIENT
  Age: 69 Year

DRUGS (3)
  1. ALPRAZOLAM [Suspect]
     Dosage: PO
     Route: 048
  2. ACETAMINOPHEN AND HYDROCODONE BITARTRATE [Suspect]
     Dosage: PO
     Route: 048
  3. CHLORZOXAZONE [Suspect]
     Dosage: PO
     Route: 048

REACTIONS (1)
  - MULTIPLE DRUG OVERDOSE [None]
